FAERS Safety Report 13575208 (Version 1)
Quarter: 2017Q2

REPORT INFORMATION
  Report Type: Report from Study
  Country: None (occurrence: CO)
  Receive Date: 20170524
  Receipt Date: 20170524
  Transmission Date: 20170830
  Serious: Yes (Death, Hospitalization)
  Sender: FDA-Public Use
  Company Number: CO-ABBVIE-17K-036-1984700-00

PATIENT
  Age: 66 Year
  Sex: Female
  Weight: 65 kg

DRUGS (1)
  1. HUMIRA [Suspect]
     Active Substance: ADALIMUMAB
     Indication: RHEUMATOID ARTHRITIS
     Route: 058
     Dates: start: 20100827, end: 20170316

REACTIONS (1)
  - Fluid retention [Fatal]

NARRATIVE: CASE EVENT DATE: 20170507
